FAERS Safety Report 4538883-7 (Version None)
Quarter: 2004Q4

REPORT INFORMATION
  Report Type: 
  Country: None (occurrence: None)
  Receive Date: 20041227
  Receipt Date: 20041108
  Transmission Date: 20050328
  Serious: Yes (Hospitalization)
  Sender: FDA-Public Use
  Company Number: GB-ABBOTT-04P-167-0279927-00

PATIENT
  Age: 50 Year
  Sex: Male

DRUGS (4)
  1. FENOFIBRATE [Suspect]
     Indication: DRUG USE FOR UNKNOWN INDICATION
     Route: 048
     Dates: start: 20000101, end: 20000801
  2. CERIVASTATIN [Concomitant]
     Indication: DRUG USE FOR UNKNOWN INDICATION
     Dates: start: 20000101, end: 20000801
  3. ATORVASTATIN [Concomitant]
     Indication: DRUG USE FOR UNKNOWN INDICATION
     Dates: start: 20021118, end: 20040101
  4. CRESTOR [Concomitant]
     Indication: DRUG USE FOR UNKNOWN INDICATION
     Dates: start: 20040101, end: 20040501

REACTIONS (18)
  - ARTHRALGIA [None]
  - ARTHRITIS [None]
  - BACK PAIN [None]
  - CARPAL TUNNEL SYNDROME [None]
  - CLUBBING [None]
  - CONDITION AGGRAVATED [None]
  - DRY SKIN [None]
  - LIP HAEMORRHAGE [None]
  - MUSCLE ATROPHY [None]
  - MYALGIA [None]
  - NAIL PITTING [None]
  - NASOPHARYNGITIS [None]
  - NERVE INJURY [None]
  - PRURITUS [None]
  - PSORIATIC ARTHROPATHY [None]
  - PYREXIA [None]
  - SKIN BLEEDING [None]
  - WEIGHT DECREASED [None]
